FAERS Safety Report 9095335 (Version 1)
Quarter: 2013Q1

REPORT INFORMATION
  Report Type: Spontaneous
  Country: GB (occurrence: None)
  Receive Date: 20130122
  Receipt Date: 20130122
  Transmission Date: 20140127
  Serious: Yes (Other)
  Sender: FDA-Public Use
  Company Number: B0860055A

PATIENT
  Sex: 0

DRUGS (2)
  1. FLUTICASONE PROPIONATE [Suspect]
     Indication: CYSTIC FIBROSIS
     Route: 055
  2. ITRACONAZOLE [Suspect]

REACTIONS (2)
  - Cushing^s syndrome [None]
  - Hypothalamo-pituitary disorder [None]
